FAERS Safety Report 18146011 (Version 3)
Quarter: 2020Q3

REPORT INFORMATION
  Report Type: Spontaneous
  Country: US (occurrence: US)
  Receive Date: 20200813
  Receipt Date: 20200825
  Transmission Date: 20201103
  Serious: No
  Sender: FDA-Public Use
  Company Number: US-PFIZER INC-2020292863

PATIENT
  Age: 78 Year
  Sex: Male

DRUGS (2)
  1. NIVESTYM [Suspect]
     Active Substance: FILGRASTIM-AAFI
     Dosage: 300 UG  (300 MCG/0.5 ML, ONCE DAILY FOR 5 DAYS EVERY 2 WEEKS)
  2. NIVESTYM [Suspect]
     Active Substance: FILGRASTIM-AAFI
     Indication: NEUTROPENIA
     Dosage: 300MCG/0.5ML FOR 5 DAYS, DAILY
     Route: 058

REACTIONS (1)
  - Hypoacusis [Unknown]
